FAERS Safety Report 7077077-0 (Version None)
Quarter: 2010Q4

REPORT INFORMATION
  Report Type: 
  Country: None (occurrence: None)
  Receive Date: 20101101
  Receipt Date: 20101022
  Transmission Date: 20110411
  Serious: Yes (Other)
  Sender: FDA-Public Use
  Company Number: US-NOVOPROD-309817

PATIENT
  Sex: Male
  Weight: 86.168 kg

DRUGS (4)
  1. LEVEMIR [Suspect]
     Indication: TYPE 2 DIABETES MELLITUS
     Dosage: 42 U, QD AT BEDTIME
     Route: 058
     Dates: start: 20100501
  2. NOVOLOG [Suspect]
     Indication: TYPE 2 DIABETES MELLITUS
     Dosage: UNK
     Route: 058
     Dates: start: 20100501, end: 20100601
  3. NOVOLIN R [Suspect]
     Indication: TYPE 2 DIABETES MELLITUS
     Dosage: 16 IU, TID (WITH MEALS)
     Route: 058
     Dates: start: 20100601
  4. NOVOLIN R [Suspect]
     Dosage: UNK

REACTIONS (5)
  - BLOOD GLUCOSE DECREASED [None]
  - BLOOD GLUCOSE FLUCTUATION [None]
  - CONVULSION [None]
  - INCORRECT DOSE ADMINISTERED [None]
  - LACERATION [None]
